FAERS Safety Report 8137990-X (Version None)
Quarter: 2012Q1

REPORT INFORMATION
  Report Type: 
  Country: None (occurrence: None)
  Receive Date: 20120215
  Receipt Date: 20120209
  Transmission Date: 20120608
  Serious: Yes (Other)
  Sender: FDA-Public Use
  Company Number: US-PFIZER INC-2012036622

PATIENT
  Sex: Male

DRUGS (1)
  1. ARMODAFINIL [Suspect]
     Dosage: UNK

REACTIONS (2)
  - DIZZINESS [None]
  - ABASIA [None]
